FAERS Safety Report 5104079-3 (Version None)
Quarter: 2006Q3

REPORT INFORMATION
  Report Type: 
  Country: None (occurrence: None)
  Receive Date: 20060911
  Receipt Date: 20060829
  Transmission Date: 20061208
  Serious: Yes (Life-Threatening, Other)
  Sender: FDA-Public Use
  Company Number: 2006073167

PATIENT
  Age: 60 Year
  Sex: Female
  Weight: 52 kg

DRUGS (4)
  1. EPIRUBICIN [Suspect]
     Indication: BREAST CANCER
     Dosage: 90 MG (90 MG, FREQUENCY: QD) INTRAVENOUS
     Route: 042
     Dates: start: 20060118, end: 20060308
  2. FLUOROURACIL [Suspect]
     Indication: BREAST CANCER
     Dosage: 750 MG (750 MG, FREQUENCY: QD), INTRAVENOUS
     Route: 042
     Dates: start: 20060118, end: 20060308
  3. CYCLOPHOSPHAMIDE [Suspect]
     Indication: BREAST CANCER
     Dosage: 750 MG (750 MG,FREQUENCY: QD), INTRAVENOUS
     Route: 042
     Dates: start: 20060118, end: 20060308
  4. DRUG, UNSPECIFIED [Concomitant]

REACTIONS (4)
  - INTERSTITIAL LUNG DISEASE [None]
  - LUNG DISORDER [None]
  - NEUTROPHIL COUNT DECREASED [None]
  - WHITE BLOOD CELL COUNT DECREASED [None]
